FAERS Safety Report 4739106-6 (Version None)
Quarter: 2005Q3

REPORT INFORMATION
  Report Type: 
  Country: None (occurrence: None)
  Receive Date: 20050810
  Receipt Date: 20050418
  Transmission Date: 20060218
  Serious: No
  Sender: FDA-Public Use
  Company Number: US-GLAXOSMITHKLINE-A0554479A

PATIENT
  Age: 54 Year
  Sex: Female
  Weight: 66.5 kg

DRUGS (1)
  1. PAXIL CR [Suspect]
     Indication: DEPRESSION
     Route: 048
     Dates: start: 20041101

REACTIONS (11)
  - AMNESIA [None]
  - ELECTRIC SHOCK [None]
  - FATIGUE [None]
  - HEADACHE [None]
  - NAUSEA [None]
  - NERVOUSNESS [None]
  - RESTLESS LEGS SYNDROME [None]
  - RESTLESSNESS [None]
  - SOMNOLENCE [None]
  - TENSION [None]
  - TREMOR [None]
